FAERS Safety Report 20104083 (Version 1)
Quarter: 2021Q4

REPORT INFORMATION
  Report Type: Spontaneous
  Country: US (occurrence: US)
  Receive Date: 20211123
  Receipt Date: 20211123
  Transmission Date: 20220303
  Serious: No
  Sender: FDA-Public Use
  Company Number: US-AMNEAL PHARMACEUTICALS-2021-AMRX-00551

PATIENT
  Age: 16 Year
  Sex: Male

DRUGS (5)
  1. ISOTRETINOIN [Suspect]
     Active Substance: ISOTRETINOIN
     Indication: Acne
     Dosage: 40 MILLIGRAM, QD
     Route: 065
     Dates: start: 20200914
  2. ISOTRETINOIN [Suspect]
     Active Substance: ISOTRETINOIN
     Dosage: 40 MILLIGRAM, QD
     Route: 065
     Dates: start: 20201015
  3. ISOTRETINOIN [Suspect]
     Active Substance: ISOTRETINOIN
     Dosage: 40 MILLIGRAM, QD
     Route: 065
     Dates: start: 20201116
  4. ISOTRETINOIN [Suspect]
     Active Substance: ISOTRETINOIN
     Dosage: 40 MILLIGRAM, BID
     Route: 065
     Dates: start: 20201217
  5. ISOTRETINOIN [Suspect]
     Active Substance: ISOTRETINOIN
     Dosage: 40 MILLIGRAM, BID
     Route: 065
     Dates: start: 20210118

REACTIONS (1)
  - Stress [Recovering/Resolving]

NARRATIVE: CASE EVENT DATE: 20210201
